FAERS Safety Report 7599882-4 (Version None)
Quarter: 2011Q3

REPORT INFORMATION
  Report Type: 
  Country: None (occurrence: None)
  Receive Date: 20110711
  Receipt Date: 20110705
  Transmission Date: 20111222
  Serious: No
  Sender: FDA-Public Use
  Company Number: US-PFIZER INC-2011150192

PATIENT
  Sex: Male

DRUGS (5)
  1. PREDNISONE [Concomitant]
     Dosage: 2.5 MG, UNK
  2. FEBUXOSTAT [Concomitant]
     Dosage: 40 MG, UNK
  3. OMEPRAZOLE [Concomitant]
     Dosage: 40 MG, UNK
  4. SUTENT [Suspect]
     Dosage: 12.5 MG, (3 CAPSULES, EVERYDAY FOR FOUR WEEKS ON AND 2 WEEKS OFF)
     Route: 048
  5. AMLODIPINE [Concomitant]
     Dosage: 10 MG, UNK

REACTIONS (4)
  - RASH [None]
  - NAUSEA [None]
  - RED BLOOD CELL COUNT DECREASED [None]
  - WHITE BLOOD CELL COUNT DECREASED [None]
